FAERS Safety Report 6507112-7 (Version None)
Quarter: 2009Q4

REPORT INFORMATION
  Report Type: 
  Country: None (occurrence: None)
  Receive Date: 20091221
  Receipt Date: 20091210
  Transmission Date: 20100525
  Serious: Yes (Other)
  Sender: FDA-Public Use
  Company Number: PHHY2009FR54810

PATIENT
  Sex: Female

DRUGS (1)
  1. ACLASTA [Suspect]
     Indication: OSTEOPOROTIC FRACTURE
     Dosage: UNK
     Dates: start: 20091120

REACTIONS (6)
  - ASTHENIA [None]
  - BEDRIDDEN [None]
  - HEPATITIS [None]
  - HEPATOMEGALY [None]
  - INFLAMMATION [None]
  - PYREXIA [None]
